FAERS Safety Report 5701697-6 (Version None)
Quarter: 2008Q2

REPORT INFORMATION
  Report Type: 
  Country: None (occurrence: None)
  Receive Date: 20080409
  Receipt Date: 20080409
  Transmission Date: 20081010
  Serious: No
  Sender: FDA-Public Use
  Company Number: None

PATIENT
  Sex: Female

DRUGS (10)
  1. ALTEPLASE [Suspect]
     Indication: CATHETER PLACEMENT
     Dosage: 2 MG ONCE OTHER
     Route: 050
     Dates: start: 20080218, end: 20080218
  2. BENEFIBER [Concomitant]
  3. ENALAPRIL MALEATE [Concomitant]
  4. PAXIL [Concomitant]
  5. IMODIUM [Concomitant]
  6. TYLENOL (CAPLET) [Concomitant]
  7. VANCOMYCIN [Concomitant]
  8. CIPRO [Concomitant]
  9. FAMOTIDINE [Concomitant]
  10. VICODIN [Concomitant]

REACTIONS (8)
  - ABDOMINAL PAIN UPPER [None]
  - CATHETER RELATED INFECTION [None]
  - CHILLS [None]
  - DEVICE MALFUNCTION [None]
  - DYSPNOEA [None]
  - NAUSEA [None]
  - PYREXIA [None]
  - VOMITING [None]
